FAERS Safety Report 25780351 (Version 2)
Quarter: 2025Q4

REPORT INFORMATION
  Report Type: Spontaneous
  Country: US (occurrence: US)
  Receive Date: 20250909
  Receipt Date: 20251103
  Transmission Date: 20260118
  Serious: No
  Sender: SANOFI AVENTIS
  Company Number: US-SA-2025SA266885

PATIENT
  Age: 56 Year
  Sex: Male

DRUGS (22)
  1. DUPIXENT [Suspect]
     Active Substance: DUPILUMAB
     Indication: Nasal polyps
     Dosage: 300 MG, QOW
     Route: 058
  2. METOPROLOL SUCCINATE [Concomitant]
     Active Substance: METOPROLOL SUCCINATE
     Dosage: 1 DF, QD
     Route: 048
  3. MUPIROCIN [Concomitant]
     Active Substance: MUPIROCIN
     Dosage: DISSOLVE 1/2 TSP OF OINTMENT INTO 8 OZ OF NORMAL SALINE. RINSE WITH SOLUTION TWICE A DAY
     Route: 061
  4. FLUOROURACIL [Concomitant]
     Active Substance: FLUOROURACIL
  5. LEVOFLOXACIN [Concomitant]
     Active Substance: LEVOFLOXACIN
     Dosage: 1 DF, QD
     Route: 048
  6. DOXYCYCLINE HYCLATE [Concomitant]
     Active Substance: DOXYCYCLINE HYCLATE
     Dosage: TAKE 1 CAPSULE BY MOUTH TWICE A DAY FOR 10 DAYS  100 MG CAPSULE
     Route: 048
  7. METHYLPREDNISOLONE [Concomitant]
     Active Substance: METHYLPREDNISOLONE
     Dosage: TAKE 6 TABLETS ON DAY AS DIRECTED ON PACKAGE AND DECREASE BY 1 TAB  EACH DAY FOR A TOTAL OF 6 DAYS
  8. HYDROCORTISONE [Concomitant]
     Active Substance: HYDROCORTISONE
  9. DOCUSATE SODIUM [Concomitant]
     Active Substance: DOCUSATE SODIUM
     Dosage: 1 DF, BID
     Route: 048
  10. ETODOLAC [Concomitant]
     Active Substance: ETODOLAC
     Dosage: TAKE 1 TABLET BY MOUTHT TWICE A DAY 100 MG CAPSULE
     Route: 048
  11. FLUTICASONE PROPIONATE [Concomitant]
     Active Substance: FLUTICASONE PROPIONATE
     Dosage: INSTILL 2 SPRAYS INTO EACH NOSTRIL EVERY DAY. SHAKE WELL BEFORE USING
  12. GABAPENTIN [Concomitant]
     Active Substance: GABAPENTIN
     Dosage: TAKE 1 CAPSULE BY MOUTH THREE TIMESA DAY
     Route: 048
  13. OMEPRAZOLE [Concomitant]
     Active Substance: OMEPRAZOLE
     Dosage: TAKE 1 CAPSULE BY MOUTH EVERY DAY BEFORE MEAL
     Route: 048
  14. TRAMADOL [Concomitant]
     Active Substance: TRAMADOL
     Dosage: TAKE 1 TABLET BY MOUTH THREE TIMES A DAY AS NEEDED FOR 10 DAYS
     Route: 048
  15. AZITHROMYCIN [Concomitant]
     Active Substance: AZITHROMYCIN
     Dosage: 2 DF, QD
  16. AZITHROMYCIN [Concomitant]
     Active Substance: AZITHROMYCIN
     Dosage: 1 DF, QD
  17. ALBUTEROL SULFATE [Concomitant]
     Active Substance: ALBUTEROL SULFATE
     Indication: Dyspnoea
     Dosage: INHALE 1 PUFF BY MOUTH EVERY 6 HOURS AS NEEDED FOR SHORTNESS OR  BREATH OR WHEEZING
  18. ALBUTEROL SULFATE [Concomitant]
     Active Substance: ALBUTEROL SULFATE
     Indication: Wheezing
  19. BUDESONIDE [Concomitant]
     Active Substance: BUDESONIDE
     Dosage: ADD ONE AMPULE TO 80Z NASAL SALINE IRRIGATION. RINSE WITH  BOTTLE TWICE DAILY AS DIRECTED
  20. PREDNISONE [Concomitant]
     Active Substance: PREDNISONE
     Dosage: TAKE 2 TABLETS BY MOUTH TWICE DAILY EACH MORNING AND EVENING FOR 5
     Route: 048
  21. LEVOFLOXACIN [Concomitant]
     Active Substance: LEVOFLOXACIN
     Dosage: 1 DF, QD
     Route: 048
  22. OXYCODONE [Concomitant]
     Active Substance: OXYCODONE
     Indication: Pain
     Dosage: 2 DF, Q4H
     Route: 048

REACTIONS (12)
  - Muscle spasms [Recovered/Resolved]
  - Nasal congestion [Unknown]
  - Rhinorrhoea [Unknown]
  - Nasal septum deviation [Unknown]
  - Sinus polyp degeneration [Unknown]
  - Chronic sinusitis [Unknown]
  - Nasal turbinate hypertrophy [Unknown]
  - Laryngitis [Unknown]
  - Asthma [Unknown]
  - Eustachian tube dysfunction [Unknown]
  - Nasal ulcer [Unknown]
  - Headache [Unknown]

NARRATIVE: CASE EVENT DATE: 20250101
